FAERS Safety Report 7441518-7 (Version None)
Quarter: 2011Q2

REPORT INFORMATION
  Report Type: 
  Country: None (occurrence: None)
  Receive Date: 20110428
  Receipt Date: 20110422
  Transmission Date: 20111010
  Serious: Yes (Hospitalization)
  Sender: FDA-Public Use
  Company Number: JP-EISAI INC-E2090-01444-SPO-JP

PATIENT
  Sex: Male

DRUGS (5)
  1. MENEST [Concomitant]
     Indication: PARKINSON'S DISEASE
     Route: 048
     Dates: start: 20101203
  2. OLMETEC [Concomitant]
     Indication: HYPERTENSION
     Route: 048
     Dates: start: 20080304
  3. DEPAS [Concomitant]
     Route: 048
     Dates: start: 20101119
  4. EXCEGRAN [Suspect]
     Indication: PARASOMNIA
     Route: 048
     Dates: start: 20101215, end: 20101218
  5. MAGNESIUM OXIDE [Concomitant]
     Indication: CONSTIPATION
     Route: 048
     Dates: start: 20101203

REACTIONS (1)
  - DRUG ERUPTION [None]
